FAERS Safety Report 20267023 (Version 1)
Quarter: 2021Q4

REPORT INFORMATION
  Report Type: Spontaneous
  Country: JP (occurrence: None)
  Receive Date: 20211231
  Receipt Date: 20211231
  Transmission Date: 20220303
  Serious: Yes (Death)
  Sender: FDA-Public Use
  Company Number: 2021A904797

PATIENT
  Age: 22684 Day
  Sex: Female
  Weight: 62 kg

DRUGS (7)
  1. SYMBICORT [Suspect]
     Active Substance: BUDESONIDE\FORMOTEROL FUMARATE DIHYDRATE
     Indication: Asthma
     Dosage: 1 DF, TWO TIMES A DAY
     Route: 055
     Dates: start: 20211222
  2. SINGULAIR [Suspect]
     Active Substance: MONTELUKAST SODIUM
     Indication: Asthma
     Route: 048
     Dates: start: 20211217
  3. TULOBUTEROL [Suspect]
     Active Substance: TULOBUTEROL
     Indication: Asthma
     Route: 062
     Dates: start: 20211217, end: 20211222
  4. INTAL [Suspect]
     Active Substance: CROMOLYN SODIUM
     Indication: Asthma
     Dosage: DOSE UNKNOWN
     Route: 055
     Dates: start: 20211222, end: 20211222
  5. PROCATEROL HYDROCHLORIDE [Suspect]
     Active Substance: PROCATEROL HYDROCHLORIDE
     Indication: Asthma
     Dosage: DOSE UNKNOWN
     Route: 055
     Dates: start: 20211222, end: 20211222
  6. ISOTONIC SODIUM CHLORIDE SOLUTION [Suspect]
     Active Substance: SODIUM CHLORIDE
     Dosage: DOSE UNKNOWN
     Route: 055
     Dates: start: 20211222, end: 20211222
  7. BETAMETHASONE [Suspect]
     Active Substance: BETAMETHASONE
     Indication: Asthma
     Dosage: DOSE UNKNOWN
     Route: 055
     Dates: start: 20211222, end: 20211222

REACTIONS (1)
  - Death [Fatal]

NARRATIVE: CASE EVENT DATE: 20211224
